FAERS Safety Report 7212637-5 (Version None)
Quarter: 2011Q1

REPORT INFORMATION
  Report Type: 
  Country: None (occurrence: None)
  Receive Date: 20110106
  Receipt Date: 20110104
  Transmission Date: 20110831
  Serious: No
  Sender: FDA-Public Use
  Company Number: US-PFIZER INC-2011002182

PATIENT
  Sex: Female
  Weight: 76.19 kg

DRUGS (3)
  1. LEXAPRO [Concomitant]
     Dosage: UNK
  2. XANAX [Concomitant]
     Dosage: UNK
  3. LIPITOR [Suspect]
     Indication: MYOCARDIAL INFARCTION
     Dosage: UNK
     Route: 048
     Dates: start: 20101201

REACTIONS (2)
  - WRONG TECHNIQUE IN DRUG USAGE PROCESS [None]
  - DYSPHAGIA [None]
